FAERS Safety Report 4708494-9 (Version None)
Quarter: 2005Q3

REPORT INFORMATION
  Report Type: 
  Country: None (occurrence: None)
  Receive Date: 20050705
  Receipt Date: 20050627
  Transmission Date: 20060218
  Serious: Yes (Other)
  Sender: FDA-Public Use
  Company Number: DEWYE775827JUN05

PATIENT
  Age: 63 Year
  Sex: Male

DRUGS (19)
  1. TREVILOR [Suspect]
     Indication: DEPRESSION
     Dosage: SEE IMAGE
     Route: 048
     Dates: end: 20050404
  2. TREVILOR [Suspect]
     Indication: DEPRESSION
     Dosage: SEE IMAGE
     Route: 048
     Dates: start: 20050405, end: 20050428
  3. TREVILOR [Suspect]
     Indication: DEPRESSION
     Dosage: SEE IMAGE
     Route: 048
     Dates: start: 20050429, end: 20050429
  4. TREVILOR [Suspect]
     Indication: DEPRESSION
     Dosage: SEE IMAGE
     Route: 048
     Dates: start: 20050430, end: 20050430
  5. REMERGIL                       (MIRTAZAPINE) [Suspect]
     Dosage: SEE IMAGE
     Route: 048
     Dates: start: 20050405, end: 20050417
  6. REMERGIL                       (MIRTAZAPINE) [Suspect]
     Dosage: SEE IMAGE
     Route: 048
     Dates: start: 20050418
  7. STANGYL                        (TRIMIPRAMINE MALEATE) [Suspect]
     Dosage: SEE IMAGE
     Route: 048
     Dates: start: 20050405, end: 20050417
  8. STANGYL                        (TRIMIPRAMINE MALEATE) [Suspect]
     Dosage: SEE IMAGE
     Route: 048
     Dates: start: 20050418, end: 20050428
  9. ZYPREXA [Suspect]
     Dosage: 20 MG ORAL
     Route: 048
     Dates: start: 20050405
  10. HYPNOREX (LITHIUM CARBONTE) [Concomitant]
  11. .................. [Concomitant]
  12. METOPROLOL SUCCINATE [Concomitant]
  13. LORAZEPAM [Concomitant]
  14. .............. [Concomitant]
  15. ........ [Concomitant]
  16. ........... [Concomitant]
  17. ................ [Concomitant]
  18. ............ [Concomitant]
  19. ................. [Concomitant]

REACTIONS (4)
  - ALANINE AMINOTRANSFERASE INCREASED [None]
  - ASPARTATE AMINOTRANSFERASE INCREASED [None]
  - DRUG INTERACTION [None]
  - GAMMA-GLUTAMYLTRANSFERASE INCREASED [None]
